FAERS Safety Report 5121217-7 (Version None)
Quarter: 2006Q4

REPORT INFORMATION
  Report Type: 
  Country: None (occurrence: None)
  Receive Date: 20061002
  Receipt Date: 20060919
  Transmission Date: 20070319
  Serious: Yes (Hospitalization, Other)
  Sender: FDA-Public Use
  Company Number: US200608006518

PATIENT
  Sex: Female
  Weight: 72.6 kg

DRUGS (4)
  1. ZYPREXA [Suspect]
     Dosage: 5 MG
     Dates: start: 20050301, end: 20050801
  2. QUETIAPINE FUMARATE [Concomitant]
  3. CYMBALTA [Concomitant]
  4. ZIPRASIDONE HCL [Concomitant]

REACTIONS (14)
  - CHOLELITHIASIS [None]
  - CONDITION AGGRAVATED [None]
  - DIABETES MELLITUS [None]
  - DIABETIC KETOACIDOSIS [None]
  - GALLBLADDER DISORDER [None]
  - HYPERINSULINISM [None]
  - HYPERTENSION [None]
  - HYPOGLYCAEMIA [None]
  - LACTIC ACIDOSIS [None]
  - METABOLIC DISORDER [None]
  - OBESITY [None]
  - PANCREATITIS [None]
  - VISION BLURRED [None]
  - WEIGHT DECREASED [None]
